FAERS Safety Report 21194826 (Version 2)
Quarter: 2022Q3

REPORT INFORMATION
  Report Type: Spontaneous
  Country: SE (occurrence: SE)
  Receive Date: 20220810
  Receipt Date: 20220909
  Transmission Date: 20221027
  Serious: Yes (Other)
  Sender: FDA-Public Use
  Company Number: SE-BAYER-2022P010032

PATIENT
  Age: 33 Year
  Sex: Female

DRUGS (1)
  1. KYLEENA [Suspect]
     Active Substance: LEVONORGESTREL
     Dosage: 17.5?G/DAY
     Route: 015
     Dates: start: 20200303

REACTIONS (3)
  - Device breakage [None]
  - Complication of device removal [None]
  - Procedural pain [None]

NARRATIVE: CASE EVENT DATE: 20220804
